FAERS Safety Report 8525494-1 (Version None)
Quarter: 2012Q3

REPORT INFORMATION
  Report Type: 
  Country: None (occurrence: None)
  Receive Date: 20120710
  Receipt Date: 20120629
  Transmission Date: 20120928
  Serious: Yes (Death)
  Sender: FDA-Public Use
  Company Number: DSA_58220_2012

PATIENT
  Sex: Male
  Weight: 1.5 kg

DRUGS (1)
  1. DICLOFENAC (DICLOFENAC) 50 MG [Suspect]
     Indication: BACK PAIN
     Dosage: (DOSE AND FREQUENCY UNSPECIFIED TRANSPLACENTAL)
     Route: 064

REACTIONS (7)
  - PERITONEAL DIALYSIS [None]
  - NEONATAL ANURIA [None]
  - RENAL FAILURE NEONATAL [None]
  - OEDEMA NEONATAL [None]
  - PERITONITIS [None]
  - MATERNAL DRUGS AFFECTING FOETUS [None]
  - NEONATAL RESPIRATORY DISTRESS SYNDROME [None]
